FAERS Safety Report 5330582-7 (Version None)
Quarter: 2007Q2

REPORT INFORMATION
  Report Type: 
  Country: None (occurrence: None)
  Receive Date: 20070516
  Receipt Date: 20070510
  Transmission Date: 20071010
  Serious: Yes (Life-Threatening)
  Sender: FDA-Public Use
  Company Number: 2007AL001908

PATIENT
  Age: 51 Year
  Sex: Male

DRUGS (14)
  1. DICLOFENAC [Suspect]
     Indication: PAIN
     Dosage: 50 MG; TID; PO
     Route: 048
     Dates: start: 20070405, end: 20070410
  2. HEPARIN [Concomitant]
  3. LINEZOLID [Concomitant]
  4. MORPHINE [Concomitant]
  5. MOVICOL [Concomitant]
  6. NYSTATIN [Concomitant]
  7. OMEPRAZOLE [Concomitant]
  8. PARACETAMOL [Concomitant]
  9. PROPOFOL [Concomitant]
  10. RIFAMPICIN [Concomitant]
  11. SALBUTAMOL [Concomitant]
  12. SENNA [Concomitant]
  13. DOCUSATE SODIUM [Concomitant]
  14. VANCOMYCIN [Concomitant]

REACTIONS (1)
  - BLOOD POTASSIUM INCREASED [None]
